FAERS Safety Report 4915075-0 (Version None)
Quarter: 2006Q1

REPORT INFORMATION
  Report Type: 
  Country: None (occurrence: None)
  Receive Date: 20060215
  Receipt Date: 20060215
  Transmission Date: 20060701
  Serious: Yes (Hospitalization)
  Sender: FDA-Public Use
  Company Number: None

PATIENT
  Sex: Female
  Weight: 49.8957 kg

DRUGS (8)
  1. ZIAC [Suspect]
     Indication: HYPERTENSION
     Dosage: PO QD [PRIOR TO ADMISSION]
     Route: 048
  2. MICARDIS [Concomitant]
  3. ALLEGRA [Concomitant]
  4. PROTONIX [Concomitant]
  5. LIPITOR [Concomitant]
  6. LUNESTA [Concomitant]
  7. WELLBUTRIN [Concomitant]
  8. DARVOCET [Concomitant]

REACTIONS (4)
  - ASTHENIA [None]
  - DEHYDRATION [None]
  - DISORIENTATION [None]
  - SYNCOPE [None]
